FAERS Safety Report 13639747 (Version 1)
Quarter: 2017Q2

REPORT INFORMATION
  Report Type: Spontaneous
  Country: US (occurrence: US)
  Receive Date: 20170609
  Receipt Date: 20170609
  Transmission Date: 20170830
  Serious: No
  Sender: FDA-Public Use
  Company Number: US-ROCHE-1309669

PATIENT
  Age: 2 Year
  Sex: Female

DRUGS (1)
  1. KLONOPIN [Suspect]
     Active Substance: CLONAZEPAM
     Indication: PRODUCT USED FOR UNKNOWN INDICATION
     Dosage: THREE TO FOUR DOSAGE FORM
     Route: 048

REACTIONS (3)
  - Irritability [Not Recovered/Not Resolved]
  - Intentional product misuse [Unknown]
  - Crying [Not Recovered/Not Resolved]
